FAERS Safety Report 12720849 (Version 2)
Quarter: 2016Q4

REPORT INFORMATION
  Report Type: Spontaneous
  Country: US (occurrence: US)
  Receive Date: 20160907
  Receipt Date: 20161222
  Transmission Date: 20170207
  Serious: Yes (Death, Hospitalization, Other)
  Sender: FDA-Public Use
  Company Number: US-ACADIA PHARMACEUTICALS INC.-ACA-2016-000559

PATIENT
  Sex: Male

DRUGS (9)
  1. NUPLAZID [Suspect]
     Active Substance: PIMAVANSERIN TARTRATE
     Indication: PARKINSON^S DISEASE PSYCHOSIS
     Dosage: 34 MG, QD
     Route: 048
     Dates: start: 20160623, end: 201608
  2. ATIVAN [Concomitant]
     Active Substance: LORAZEPAM
     Indication: ANXIETY
  3. ATROPINE SULATE [Concomitant]
     Active Substance: ATROPINE SULFATE
     Indication: PRODUCT USED FOR UNKNOWN INDICATION
  4. LEVSIN [Concomitant]
     Active Substance: HYOSCYAMINE SULFATE
     Indication: SECRETION DISCHARGE
     Dosage: 0.125 MGM EVERY 2 HRS
  5. MORPHINE SULFATE. [Concomitant]
     Active Substance: MORPHINE SULFATE
     Indication: PAIN
     Dosage: 5 MG (0.25 ML), TID AT 6 AM, 2 PM AND 10 PM
  6. ATIVAN [Concomitant]
     Active Substance: LORAZEPAM
     Indication: RESTLESSNESS
  7. NUPLAZID [Suspect]
     Active Substance: PIMAVANSERIN TARTRATE
     Indication: HALLUCINATION
  8. NUPLAZID [Suspect]
     Active Substance: PIMAVANSERIN TARTRATE
     Indication: DELUSION
  9. MORPHINE SULFATE. [Concomitant]
     Active Substance: MORPHINE SULFATE
     Indication: DYSPNOEA
     Dosage: 5 MG, TID
     Route: 048

REACTIONS (4)
  - Cerebrovascular accident [Fatal]
  - Dysarthria [Unknown]
  - Hemiparesis [Unknown]
  - Dysphagia [Unknown]

NARRATIVE: CASE EVENT DATE: 20160801
